FAERS Safety Report 18952874 (Version 1)
Quarter: 2021Q1

REPORT INFORMATION
  Report Type: Spontaneous
  Country: NL (occurrence: NL)
  Receive Date: 20210301
  Receipt Date: 20210301
  Transmission Date: 20210420
  Serious: Yes (Death)
  Sender: FDA-Public Use
  Company Number: NL-ACCORD-212540

PATIENT
  Age: 74 Year
  Sex: Male
  Weight: 76.6 kg

DRUGS (5)
  1. FLUOROURACIL ACCORD [Suspect]
     Active Substance: FLUOROURACIL
     Indication: PANCREATIC CARCINOMA
     Dosage: STRENGTH?10ML?500MG
     Route: 040
     Dates: start: 20201001, end: 20201002
  2. IRINOTECAN [Concomitant]
     Active Substance: IRINOTECAN
     Indication: PANCREATIC CARCINOMA
     Route: 042
     Dates: start: 20201001, end: 20201001
  3. OXALIPLATIN. [Concomitant]
     Active Substance: OXALIPLATIN
     Indication: PANCREATIC CARCINOMA
     Route: 042
     Dates: start: 20201001, end: 20201001
  4. FOLINIC ACID [Concomitant]
     Active Substance: LEUCOVORIN
     Indication: PANCREATIC CARCINOMA
     Dates: start: 20201001, end: 20201001
  5. FLUOROURACIL ACCORD [Suspect]
     Active Substance: FLUOROURACIL
     Indication: PANCREATIC CARCINOMA
     Dosage: 50 MG / ML VIAL 50 ML?50 MG / ML VIAL 20 ML
     Route: 042
     Dates: start: 20201001, end: 20201003

REACTIONS (4)
  - Diarrhoea [Unknown]
  - Decreased appetite [Unknown]
  - Mucosal inflammation [Unknown]
  - Death [Fatal]

NARRATIVE: CASE EVENT DATE: 20201008
